FAERS Safety Report 7572513-5 (Version None)
Quarter: 2011Q2

REPORT INFORMATION
  Report Type: 
  Country: None (occurrence: None)
  Receive Date: 20110627
  Receipt Date: 20110615
  Transmission Date: 20111010
  Serious: Yes (Hospitalization)
  Sender: FDA-Public Use
  Company Number: FR-BIOGENIDEC-2011BI019023

PATIENT
  Age: 21 Year
  Sex: Female
  Weight: 64 kg

DRUGS (4)
  1. NASACORT [Concomitant]
     Dates: start: 20110221
  2. TYSABRI [Suspect]
     Indication: MULTIPLE SCLEROSIS
     Route: 042
     Dates: start: 20071023
  3. CLONAZEPAM [Concomitant]
     Indication: MUSCLE SPASTICITY
     Route: 048
     Dates: start: 20070701
  4. TOPLEXIL [Concomitant]
     Dates: start: 20110221

REACTIONS (1)
  - ACUTE PSYCHOSIS [None]
